FAERS Safety Report 7410714-7 (Version None)
Quarter: 2011Q2

REPORT INFORMATION
  Report Type: 
  Country: None (occurrence: None)
  Receive Date: 20110405
  Receipt Date: 20110321
  Transmission Date: 20111010
  Serious: Yes (Hospitalization)
  Sender: FDA-Public Use
  Company Number: 1000019637

PATIENT
  Age: 40 Year
  Sex: Female

DRUGS (4)
  1. ESCITALOPRAM OXALATE [Suspect]
     Indication: DEPRESSION
     Dates: start: 20110216
  2. TERCIAN (CYAMEMAZINE) (CYAMEMAZINE) [Concomitant]
  3. ESCITALOPRAM OXALATE [Suspect]
     Indication: DEPRESSION
     Dosage: 10 MG (10 MG, 1 IN 1 D), ORAL
     Route: 048
     Dates: start: 20110201, end: 20110213
  4. ZOLPIDEM (ZOLPIDEM) (ZOLPIDEM) [Concomitant]

REACTIONS (10)
  - URINARY INCONTINENCE [None]
  - EPILEPSY [None]
  - EPISTAXIS [None]
  - HAEMATOMA [None]
  - FALL [None]
  - RIB FRACTURE [None]
  - DIZZINESS [None]
  - GOITRE [None]
  - TOOTH FRACTURE [None]
  - LOSS OF CONSCIOUSNESS [None]
